FAERS Safety Report 6449172-8 (Version None)
Quarter: 2009Q4

REPORT INFORMATION
  Report Type: 
  Country: None (occurrence: None)
  Receive Date: 20091120
  Receipt Date: 20091118
  Transmission Date: 20100525
  Serious: Yes (Death, Life-Threatening, Other)
  Sender: FDA-Public Use
  Company Number: JP-BAYER-200913900BYL

PATIENT
  Age: 59 Year
  Sex: Male

DRUGS (14)
  1. NEXAVAR [Suspect]
     Indication: HEPATIC NEOPLASM MALIGNANT
     Dosage: TOTAL DAILY DOSE: 400 MG  UNIT DOSE: 200 MG
     Route: 048
     Dates: start: 20090722, end: 20091001
  2. NOVAMIN [Concomitant]
     Dosage: SINCE BEFORE ADMINISTRATION
     Route: 048
  3. GLYCERIN [Concomitant]
     Dosage: SINCE BEFORE ADMINISTRATION
     Route: 054
  4. GASTER D [Concomitant]
     Dosage: SINCE BEFORE ADMINISTRATION
     Route: 048
  5. MAGLAX [Concomitant]
     Dosage: SINCE BEFORE ADMINISTRATION
     Route: 048
  6. OXYCONTIN [Concomitant]
     Dosage: UNIT DOSE: 20 MG
     Route: 048
  7. OXYCONTIN [Concomitant]
     Dosage: UNIT DOSE: 5 MG
     Route: 048
  8. HIRUDOID [Concomitant]
     Dosage: SINCE BEFORE ADMINISTRATION
     Route: 061
  9. NAIXAN [Concomitant]
     Dosage: UNIT DOSE: 100 MG
     Route: 048
  10. LAC B [Concomitant]
     Dosage: SINCE BEFORE ADMINISTRATION
     Route: 048
  11. VITAJECT [Concomitant]
     Route: 042
     Dates: start: 20091009
  12. KAYTWO N [Concomitant]
     Route: 042
     Dates: start: 20091009
  13. GASTER [Concomitant]
     Route: 042
     Dates: start: 20091009
  14. MORPHINE HYDROCHLORIDE [Concomitant]
     Route: 042
     Dates: start: 20091009

REACTIONS (2)
  - HEPATIC NEOPLASM MALIGNANT [None]
  - NECROTISING FASCIITIS [None]
